FAERS Safety Report 18430338 (Version 2)
Quarter: 2021Q1

REPORT INFORMATION
  Report Type: Report from Study
  Country: None (occurrence: CO)
  Receive Date: 20201026
  Receipt Date: 20210129
  Transmission Date: 20210419
  Serious: Yes (Hospitalization, Other)
  Sender: FDA-Public Use
  Company Number: CO-ABBVIE-20K-036-3623641-00

PATIENT
  Age: 51 Year
  Sex: Female
  Weight: 50 kg

DRUGS (3)
  1. HUMIRA [Suspect]
     Active Substance: ADALIMUMAB
     Indication: CROHN^S DISEASE
     Route: 058
     Dates: end: 20201015
  2. HUMIRA [Suspect]
     Active Substance: ADALIMUMAB
     Route: 058
  3. HUMIRA [Suspect]
     Active Substance: ADALIMUMAB
     Indication: CROHN^S DISEASE
     Route: 058
     Dates: start: 20160922

REACTIONS (12)
  - Hypotension [Recovering/Resolving]
  - Faeces discoloured [Recovering/Resolving]
  - Tachycardia [Recovering/Resolving]
  - Gastrointestinal disorder [Recovering/Resolving]
  - Blood potassium decreased [Recovering/Resolving]
  - Malaise [Not Recovered/Not Resolved]
  - Faeces soft [Recovering/Resolving]
  - Pain [Recovering/Resolving]
  - Haemorrhoidal haemorrhage [Recovering/Resolving]
  - Nausea [Recovering/Resolving]
  - Headache [Not Recovered/Not Resolved]
  - Pyrexia [Recovered/Resolved]

NARRATIVE: CASE EVENT DATE: 2019
